FAERS Safety Report 21948963 (Version 2)
Quarter: 2023Q1

REPORT INFORMATION
  Report Type: Report from Study
  Country: BD (occurrence: BD)
  Receive Date: 20230203
  Receipt Date: 20230206
  Transmission Date: 20230417
  Serious: Yes (Death)
  Sender: FDA-Public Use
  Company Number: BD-002147023-NVSC2023BD023807

PATIENT
  Age: 29 Year
  Sex: Female
  Weight: 43 kg

DRUGS (2)
  1. ZOMETA [Suspect]
     Active Substance: ZOLEDRONIC ACID
     Indication: Gastric cancer
     Dosage: 4 MG, Q4W
     Route: 042
     Dates: start: 202209, end: 202210
  2. ZOMETA [Suspect]
     Active Substance: ZOLEDRONIC ACID
     Indication: Metastases to bone

REACTIONS (2)
  - Septic shock [Fatal]
  - Product use in unapproved indication [Unknown]

NARRATIVE: CASE EVENT DATE: 20220901
